FAERS Safety Report 5363136-7 (Version None)
Quarter: 2007Q2

REPORT INFORMATION
  Report Type: 
  Country: None (occurrence: None)
  Receive Date: 20070618
  Receipt Date: 20070610
  Transmission Date: 20071010
  Serious: Yes (Hospitalization, Other)
  Sender: FDA-Public Use
  Company Number: 2007SP009305

PATIENT
  Age: 50 Year
  Sex: Female

DRUGS (2)
  1. PEG-INTRON [Suspect]
     Indication: HEPATITIS C
     Dates: start: 20070424, end: 20070504
  2. RIBAVIRIN [Suspect]
     Indication: HEPATITIS C
     Dosage: PO
     Route: 048
     Dates: start: 20070424, end: 20070504

REACTIONS (5)
  - BLOOD PRESSURE ABNORMAL [None]
  - CONSTIPATION [None]
  - INTRACRANIAL ANEURYSM [None]
  - PAIN [None]
  - PYREXIA [None]
